FAERS Safety Report 8758948 (Version 2)
Quarter: 2012Q4

REPORT INFORMATION
  Report Type: 
  Country: US (occurrence: US)
  Receive Date: 20120829
  Receipt Date: 20121022
  Transmission Date: 20130627
  Serious: Yes (Life-Threatening, Hospitalization, Other)
  Sender: FDA-Public Use
  Company Number: US-AMGEN-USASP2012054077

PATIENT
  Age: 58 Year
  Sex: Female
  Weight: 83.9 kg

DRUGS (30)
  1. PROLIA [Suspect]
     Indication: SENILE OSTEOPOROSIS
     Dosage: 60 mg, q6mo
     Route: 058
     Dates: start: 20120228
  2. ALLOPURINOL [Concomitant]
     Dosage: 400, UNK
  3. ZYRTEC [Concomitant]
     Dosage: 10, UNK
  4. CRESTOR [Concomitant]
     Dosage: 10, UNK
  5. COMBIVENT [Concomitant]
  6. DUONEB [Concomitant]
  7. EPINEPHRINE [Concomitant]
  8. ERYTHROMYCIN [Concomitant]
     Route: 047
  9. EVOXAC [Concomitant]
     Dosage: 10, UNK
  10. FLEXERIL                           /00428402/ [Concomitant]
     Dosage: 10, UNK
  11. FORADIL [Concomitant]
     Dosage: 12, UNK
  12. GENTAMYCIN                         /00047101/ [Concomitant]
     Route: 047
  13. LASIX                              /00032601/ [Concomitant]
     Dosage: 40, UNK
  14. LEVOTHYROXINE [Concomitant]
     Dosage: 50, UNK
  15. LONOX [Concomitant]
     Dosage: 2.5, UNK
  16. LYRICA [Concomitant]
     Dosage: 75, UNK
  17. MEDROL                             /00049601/ [Concomitant]
     Dosage: 4, UNK
  18. MORPHINE SULFATE AND DEXTROSE [Concomitant]
     Dosage: 15, UNK
  19. MS CONTIN [Concomitant]
     Dosage: 100, UNK
  20. NORTRIPTYLINE [Concomitant]
     Dosage: 10, UNK
  21. OMEPRAZOLE [Concomitant]
     Dosage: 20, UNK
  22. PROMETHAZINE [Concomitant]
  23. RANITIDINE [Concomitant]
     Dosage: 75, UNK
  24. SILVADENE [Concomitant]
  25. SINGULAIR [Concomitant]
     Dosage: 10, UNK
  26. SPIRONOLACTONE [Concomitant]
     Dosage: 75, UNK
  27. THEOPHYLLINE [Concomitant]
     Dosage: 300, UNK
  28. VITAMIN D /00107901/ [Concomitant]
     Dosage: 50000, UNK
  29. ZOLOFT [Concomitant]
     Dosage: 25, UNK
  30. METOPROLOL [Concomitant]
     Dosage: 25, UNK

REACTIONS (12)
  - Haemorrhage [Unknown]
  - Haematoma [Unknown]
  - Blister [Unknown]
  - Pyrexia [Unknown]
  - Local swelling [Unknown]
  - Oedema genital [Unknown]
  - Necrosis [Unknown]
  - Sepsis [Unknown]
  - Hypersensitivity [Unknown]
  - Necrotising fasciitis [Unknown]
  - Rash [Unknown]
  - Fatigue [Recovered/Resolved]
